FAERS Safety Report 8978097 (Version 1)
Quarter: 2012Q4

REPORT INFORMATION
  Report Type: 
  Country: US (occurrence: US)
  Receive Date: 20121220
  Receipt Date: 20121220
  Transmission Date: 20130627
  Serious: No
  Sender: FDA-Public Use
  Company Number: US-009507513-1212USA006499

PATIENT
  Sex: Female

DRUGS (11)
  1. VICTRELIS [Suspect]
  2. RIBAVIRIN [Suspect]
  3. PEGASYS [Suspect]
     Dosage: 180microgram/0.5ml PFS
  4. XANAX [Concomitant]
  5. BENADRYL [Concomitant]
  6. WELLBUTRIN [Concomitant]
  7. LEVOTHYROXINE SODIUM [Concomitant]
  8. ADVIL [Concomitant]
  9. VITAMINS (UNSPECIFIED) [Concomitant]
  10. FOLIC ACID [Concomitant]
  11. TYLENOL [Concomitant]

REACTIONS (1)
  - White blood cell count decreased [Unknown]
